FAERS Safety Report 26198639 (Version 1)
Quarter: 2025Q4

REPORT INFORMATION
  Report Type: Spontaneous
  Country: VN (occurrence: VN)
  Receive Date: 20251224
  Receipt Date: 20251224
  Transmission Date: 20260117
  Serious: Yes (Hospitalization)
  Sender: AMGEN
  Company Number: VN-AMGEN-VNMSP2025251405

PATIENT

DRUGS (18)
  1. DENOSUMAB [Suspect]
     Active Substance: DENOSUMAB
     Indication: Osteoporosis
     Dosage: 60 MILLIGRAM
     Route: 058
     Dates: start: 20251212, end: 20251215
  2. DENOSUMAB [Suspect]
     Active Substance: DENOSUMAB
     Indication: Compression fracture
  3. DENOSUMAB [Suspect]
     Active Substance: DENOSUMAB
     Indication: Myelopathy
  4. METHYLCOBALAMIN [Concomitant]
     Active Substance: METHYLCOBALAMIN
     Indication: Osteoporosis
     Dosage: 500 MICROGRAM 2PILLS
     Dates: start: 20251212, end: 20251215
  5. METHYLCOBALAMIN [Concomitant]
     Active Substance: METHYLCOBALAMIN
     Indication: Compression fracture
  6. METHYLCOBALAMIN [Concomitant]
     Active Substance: METHYLCOBALAMIN
     Indication: Myelopathy
  7. Sismyodine [Concomitant]
     Indication: Osteoporosis
     Dosage: 50 MILLIGRAM, 3 PILLS
     Dates: start: 20251212, end: 20251215
  8. Sismyodine [Concomitant]
     Indication: Compression fracture
  9. Sismyodine [Concomitant]
     Indication: Myelopathy
  10. PARTAMOL [Concomitant]
     Indication: Osteoporosis
     Dosage: 500 MILLIGRAM 3 PILLS
     Dates: start: 20251212, end: 20251215
  11. PARTAMOL [Concomitant]
     Indication: Compression fracture
  12. PARTAMOL [Concomitant]
     Indication: Myelopathy
  13. Davyca [Concomitant]
     Indication: Osteoporosis
     Dosage: 75 MILLIGRAM
     Dates: start: 20251212, end: 20251215
  14. Davyca [Concomitant]
     Indication: Compression fracture
  15. Davyca [Concomitant]
     Indication: Myelopathy
  16. NEXIUM [Concomitant]
     Active Substance: ESOMEPRAZOLE MAGNESIUM
     Indication: Osteoporosis
     Dosage: UNK
     Dates: start: 20251212, end: 20251215
  17. NEXIUM [Concomitant]
     Active Substance: ESOMEPRAZOLE MAGNESIUM
     Indication: Compression fracture
  18. NEXIUM [Concomitant]
     Active Substance: ESOMEPRAZOLE MAGNESIUM
     Indication: Myelopathy

REACTIONS (1)
  - Overdose [Unknown]

NARRATIVE: CASE EVENT DATE: 20251212
